FAERS Safety Report 9487368 (Version 1)
Quarter: 2013Q3

REPORT INFORMATION
  Report Type: Spontaneous
  Country: US (occurrence: US)
  Receive Date: 20130829
  Receipt Date: 20130829
  Transmission Date: 20140515
  Serious: No
  Sender: FDA-Public Use
  Company Number: US-009507513-1308USA013584

PATIENT
  Sex: 0

DRUGS (1)
  1. FOSAMAX [Suspect]
     Dosage: 70 MG, QD FOR SEVEN CONSECUTIVE DAYS
     Route: 048

REACTIONS (3)
  - Overdose [Unknown]
  - Incorrect dose administered [Unknown]
  - No adverse event [Unknown]
